FAERS Safety Report 9375396 (Version 2)
Quarter: 2013Q3

REPORT INFORMATION
  Report Type: Spontaneous
  Country: FR (occurrence: FR)
  Receive Date: 20130628
  Receipt Date: 20130712
  Transmission Date: 20140515
  Serious: Yes (Death, Hospitalization)
  Sender: FDA-Public Use
  Company Number: FR-TEVA-415339ISR

PATIENT
  Age: 86 Year
  Sex: Female

DRUGS (1)
  1. FUROSEMIDE TEVA 40 MG [Suspect]
     Indication: CARDIAC FAILURE
     Dosage: 40 MILLIGRAM DAILY;
     Route: 048

REACTIONS (5)
  - Death [Fatal]
  - Somnolence [Unknown]
  - Respiratory failure [Unknown]
  - Hypercapnia [Unknown]
  - Oedema peripheral [Unknown]
